FAERS Safety Report 5021324-3 (Version None)
Quarter: 2006Q2

REPORT INFORMATION
  Report Type: 
  Country: None (occurrence: None)
  Receive Date: 20060608
  Receipt Date: 20050615
  Transmission Date: 20061013
  Serious: Yes (Hospitalization)
  Sender: FDA-Public Use
  Company Number: US-BRISTOL-MYERS SQUIBB COMPANY-13011762

PATIENT
  Sex: Male

DRUGS (5)
  1. SINEMET [Suspect]
     Indication: PARKINSON'S DISEASE
     Route: 048
  2. COENZYME Q10 [Concomitant]
  3. HUMALOG [Concomitant]
  4. PROVIGIL [Concomitant]
  5. LITHIUM CARBONATE [Concomitant]

REACTIONS (1)
  - PARKINSONISM [None]
